FAERS Safety Report 5817561-8 (Version None)
Quarter: 2008Q3

REPORT INFORMATION
  Report Type: 
  Country: None (occurrence: None)
  Receive Date: 20080722
  Receipt Date: 20080711
  Transmission Date: 20090109
  Serious: Yes (Other)
  Sender: FDA-Public Use
  Company Number: US-JNJFOC-20080703385

PATIENT
  Age: 55 Year
  Sex: Female

DRUGS (5)
  1. ULTRAM ER [Suspect]
     Indication: BACK PAIN
  2. HYDROCHLOROTHIAZIDE [Concomitant]
  3. SEROQUEL [Concomitant]
  4. ZANAFLEX [Concomitant]
  5. ANAPRIL [Concomitant]

REACTIONS (1)
  - HEPATITIS [None]
